FAERS Safety Report 4600256-6 (Version None)
Quarter: 2005Q1

REPORT INFORMATION
  Report Type: 
  Country: None (occurrence: None)
  Receive Date: 20050127
  Receipt Date: 20041029
  Transmission Date: 20050727
  Serious: No
  Sender: FDA-Public Use
  Company Number: USA041183055

PATIENT
  Age: 17 Year
  Sex: Male

DRUGS (3)
  1. STRATTERA [Suspect]
     Dosage: 105 MG DAY
     Dates: start: 20030101
  2. RITALIN [Concomitant]
  3. PAXIL [Concomitant]

REACTIONS (2)
  - DRUG INEFFECTIVE [None]
  - PRESCRIBED OVERDOSE [None]
